FAERS Safety Report 9298359 (Version 1)
Quarter: 2013Q2

REPORT INFORMATION
  Report Type: Spontaneous
  Country: US (occurrence: US)
  Receive Date: 20130520
  Receipt Date: 20130520
  Transmission Date: 20140414
  Serious: No
  Sender: FDA-Public Use
  Company Number: US-PFIZER INC-2013153792

PATIENT
  Age: 50 Year
  Sex: Female
  Weight: 68.03 kg

DRUGS (4)
  1. CHANTIX [Suspect]
     Indication: SMOKING CESSATION THERAPY
     Dosage: UNK
     Dates: start: 2008, end: 2008
  2. CHANTIX [Suspect]
     Dosage: 0.5 MG, UNK
     Dates: start: 2008, end: 2008
  3. CHANTIX [Suspect]
     Dosage: 1 MG, UNK
     Dates: start: 2008, end: 2008
  4. OXYCONTIN [Concomitant]
     Indication: BACK PAIN
     Dosage: 15 MG, AS NEEDED

REACTIONS (2)
  - Vomiting [Recovered/Resolved]
  - Blood glucose decreased [Unknown]
